FAERS Safety Report 13191902 (Version 1)
Quarter: 2017Q1

REPORT INFORMATION
  Report Type: Spontaneous
  Country: US (occurrence: US)
  Receive Date: 20170206
  Receipt Date: 20170206
  Transmission Date: 20170428
  Serious: Yes (Disabling)
  Sender: FDA-Public Use
  Company Number: None

PATIENT
  Age: 18 Year
  Sex: Female
  Weight: 76.5 kg

DRUGS (2)
  1. ACYCLOVIR. [Suspect]
     Active Substance: ACYCLOVIR
     Indication: HERPES ZOSTER
  2. ACYCLOVIR. [Suspect]
     Active Substance: ACYCLOVIR
     Indication: NEURALGIA

REACTIONS (4)
  - Mental status changes [None]
  - Wrong technique in product usage process [None]
  - Confusional state [None]
  - Paranoia [None]

NARRATIVE: CASE EVENT DATE: 20160614
